FAERS Safety Report 5440771-9 (Version None)
Quarter: 2007Q3

REPORT INFORMATION
  Report Type: 
  Country: None (occurrence: None)
  Receive Date: 20070831
  Receipt Date: 20070821
  Transmission Date: 20080115
  Serious: Yes (Other)
  Sender: FDA-Public Use
  Company Number: US-ABBOTT-07P-163-0378459-00

PATIENT
  Age: 79 Year
  Sex: Male

DRUGS (26)
  1. WARFARIN SODIUM [Suspect]
     Indication: ANTICOAGULANT THERAPY
     Dates: start: 20031201
  2. WARFARIN SODIUM [Suspect]
  3. WARFARIN SODIUM [Suspect]
  4. WARFARIN SODIUM [Suspect]
  5. WARFARIN SODIUM [Suspect]
     Dosage: NOT REPORTED
  6. WARFARIN SODIUM [Suspect]
     Dates: start: 20050812, end: 20050813
  7. WARFARIN SODIUM [Suspect]
     Dates: start: 20050814, end: 20050814
  8. WARFARIN SODIUM [Suspect]
     Dates: start: 20050815, end: 20050916
  9. WARFARIN SODIUM [Suspect]
     Dates: start: 20050817, end: 20050818
  10. WARFARIN SODIUM [Suspect]
     Dates: start: 20050819, end: 20050821
  11. WARFARIN SODIUM [Suspect]
     Dates: start: 20050822, end: 20050825
  12. WARFARIN SODIUM [Suspect]
     Dates: start: 20050826, end: 20060830
  13. WARFARIN SODIUM [Suspect]
     Dates: start: 20050831, end: 20050905
  14. WARFARIN SODIUM [Suspect]
     Dosage: 10 MG M/W/F/SN AND 7.5MG TU/TH/SA
     Dates: start: 20050906, end: 20050912
  15. WARFARIN SODIUM [Suspect]
     Dates: start: 20050913, end: 20050927
  16. WARFARIN SODIUM [Suspect]
     Dosage: 7.5MG TU/TH/SA/SU AND 5MG/M/W/F
     Dates: start: 20050928, end: 20051004
  17. WARFARIN SODIUM [Suspect]
     Dosage: 5MG A M/W/F/SN AND 7.5 MG TU/TH/SA
     Dates: start: 20051005
  18. RIFAMPICIN [Interacting]
     Indication: OSTEOMYELITIS
     Route: 048
     Dates: start: 20050701, end: 20050812
  19. ERTAPENEM SODIUM [Concomitant]
     Indication: DRUG USE FOR UNKNOWN INDICATION
     Route: 042
  20. VANCOMYCIN [Concomitant]
     Indication: DRUG USE FOR UNKNOWN INDICATION
     Route: 042
  21. AMLODIPINE [Concomitant]
     Indication: DRUG USE FOR UNKNOWN INDICATION
  22. CALCIUM CARBONATE [Concomitant]
     Indication: DRUG USE FOR UNKNOWN INDICATION
  23. ENOXAPARIN SODIUM [Concomitant]
     Indication: ANTICOAGULANT THERAPY
  24. METFORMIN HCL [Concomitant]
     Indication: DRUG USE FOR UNKNOWN INDICATION
  25. PANTOPRAZOLE SODIUM [Concomitant]
     Indication: DRUG USE FOR UNKNOWN INDICATION
  26. TERAZOSIN HCL [Concomitant]
     Indication: DRUG USE FOR UNKNOWN INDICATION

REACTIONS (2)
  - DRUG INTERACTION [None]
  - INTERNATIONAL NORMALISED RATIO DECREASED [None]
